FAERS Safety Report 4394406-7 (Version None)
Quarter: 2004Q3

REPORT INFORMATION
  Report Type: 
  Country: None (occurrence: None)
  Receive Date: 20040712
  Receipt Date: 20040706
  Transmission Date: 20050211
  Serious: Yes (Hospitalization)
  Sender: FDA-Public Use
  Company Number: 200416718GDDC

PATIENT
  Age: 50 Year
  Sex: Female

DRUGS (1)
  1. MINIRIN [Suspect]
     Indication: VON WILLEBRAND'S DISEASE
     Dosage: DOSE: UNK
     Route: 042

REACTIONS (16)
  - BLOOD OSMOLARITY DECREASED [None]
  - BRAIN OEDEMA [None]
  - COMA [None]
  - DELIRIUM [None]
  - DISCOMFORT [None]
  - DISORIENTATION [None]
  - DYSPNOEA [None]
  - HYPOCHLORAEMIA [None]
  - HYPOKALAEMIA [None]
  - HYPONATRAEMIA [None]
  - NAUSEA [None]
  - POST PROCEDURAL COMPLICATION [None]
  - TREMOR [None]
  - URINE CHLORIDE INCREASED [None]
  - URINE OSMOLARITY INCREASED [None]
  - URINE SODIUM INCREASED [None]
